FAERS Safety Report 16802052 (Version 2)
Quarter: 2019Q4

REPORT INFORMATION
  Report Type: Report from Study
  Country: JP (occurrence: JP)
  Receive Date: 20190912
  Receipt Date: 20191119
  Transmission Date: 20200122
  Serious: Yes (Hospitalization, Other)
  Sender: FDA-Public Use
  Company Number: JP-SHIRE-JP201929372AA

PATIENT

DRUGS (13)
  1. DIPHTHERIA VACCINE TOXOID, PERTUSSIS VACCINE ACELLULAR, TETANUS VACCIN [Concomitant]
     Dosage: 1 DOSAGE FORM
     Dates: start: 20141210, end: 20141210
  2. KN NO.3 [Concomitant]
     Active Substance: DEXTROSE\POTASSIUM CHLORIDE\SODIUM CHLORIDE\SODIUM LACTATE
     Indication: GAUCHER^S DISEASE
     Dosage: 1000 MILLILITER
     Route: 042
     Dates: start: 20150111, end: 20150112
  3. IMIGLUCERASE RECOMBINANT [Concomitant]
     Indication: GAUCHER^S DISEASE
     Dosage: UNK
     Route: 065
     Dates: start: 200204, end: 20120327
  4. ALBUMIN [Concomitant]
     Active Substance: ALBUMIN HUMAN
     Indication: GAUCHER^S DISEASE
     Dosage: 50 MILLILITER
     Route: 042
     Dates: start: 20150109, end: 20150109
  5. VELAGLUCERASE ALFA [Suspect]
     Active Substance: VELAGLUCERASE ALFA
     Indication: GAUCHER^S DISEASE
     Dosage: 60 INTERNATIONAL UNIT/KILOGRAM, 1X/2WKS
     Route: 042
     Dates: start: 20140917
  6. SOLYUGEN G [Concomitant]
     Dosage: 1000 MILLILITER
     Route: 042
     Dates: start: 20150110, end: 20150110
  7. VELAGLUCERASE ALFA [Suspect]
     Active Substance: VELAGLUCERASE ALFA
     Dosage: UNK
     Dates: start: 201204, end: 20140905
  8. JEBIK V [Concomitant]
     Indication: PROPHYLAXIS
     Dosage: 1 DOSAGE FORM
     Route: 058
     Dates: start: 20141113, end: 20141113
  9. JEBIK V [Concomitant]
     Dosage: 1 DOSAGE FORM
     Route: 058
     Dates: start: 20141210, end: 20141210
  10. SOLYUGEN G [Concomitant]
     Indication: GAUCHER^S DISEASE
     Dosage: 1500 MILLILITER
     Route: 042
     Dates: start: 20150108, end: 20150108
  11. KN NO.3 [Concomitant]
     Active Substance: DEXTROSE\POTASSIUM CHLORIDE\SODIUM CHLORIDE\SODIUM LACTATE
     Dosage: 500 MILLILITER
     Route: 042
     Dates: start: 20150113, end: 20150113
  12. DIPHTHERIA VACCINE TOXOID, PERTUSSIS VACCINE ACELLULAR, TETANUS VACCIN [Concomitant]
     Indication: PROPHYLAXIS
     Dosage: 1 DOSAGE FORM
     Route: 058
     Dates: start: 20141113, end: 20141113
  13. SOLYUGEN G [Concomitant]
     Dosage: 2000 MILLILITER
     Route: 042
     Dates: start: 20150109, end: 20150109

REACTIONS (4)
  - Diarrhoea [Recovered/Resolved]
  - Ascites [Recovered/Resolved]
  - Hypoalbuminaemia [Not Recovered/Not Resolved]
  - Oedema mucosal [Not Recovered/Not Resolved]

NARRATIVE: CASE EVENT DATE: 20150108
